FAERS Safety Report 7378555-7 (Version None)
Quarter: 2011Q1

REPORT INFORMATION
  Report Type: 
  Country: None (occurrence: None)
  Receive Date: 20110323
  Receipt Date: 20110323
  Transmission Date: 20110831
  Serious: Yes (Other)
  Sender: FDA-Public Use
  Company Number: None

PATIENT
  Age: 40 Year
  Sex: Male
  Weight: 117.9352 kg

DRUGS (3)
  1. PHENYTOIN [Suspect]
     Indication: CONVULSION
     Dosage: 200 MG NITE
  2. PHENYTOIN [Suspect]
     Dosage: 200 MG MORNING
     Dates: start: 19820101
  3. PHENYTOIN [Suspect]
     Indication: CONVULSION
     Dosage: 200 MG NOON

REACTIONS (2)
  - CONVULSION [None]
  - ANTICONVULSANT DRUG LEVEL DECREASED [None]
